FAERS Safety Report 20083870 (Version 1)
Quarter: 2021Q4

REPORT INFORMATION
  Report Type: Spontaneous
  Country: FR (occurrence: FR)
  Receive Date: 20211118
  Receipt Date: 20211118
  Transmission Date: 20220304
  Serious: Yes (Other)
  Sender: FDA-Public Use
  Company Number: FR-ABBVIE-21K-056-4164643-00

PATIENT
  Sex: Male

DRUGS (1)
  1. VALPROATE SODIUM [Suspect]
     Active Substance: VALPROATE SODIUM
     Indication: Product used for unknown indication
     Route: 065

REACTIONS (11)
  - Autism spectrum disorder [Unknown]
  - Phobia [Unknown]
  - Psychomotor skills impaired [Unknown]
  - Motor dysfunction [Unknown]
  - Agitation [Unknown]
  - Learning disorder [Unknown]
  - Stereotypy [Unknown]
  - Attention deficit hyperactivity disorder [Unknown]
  - Developmental delay [Unknown]
  - Sensitive skin [Unknown]
  - Muscle tone disorder [Unknown]
